FAERS Safety Report 8062188-3 (Version None)
Quarter: 2012Q1

REPORT INFORMATION
  Report Type: 
  Country: None (occurrence: None)
  Receive Date: 20120123
  Receipt Date: 20111220
  Transmission Date: 20120608
  Serious: Yes (Life-Threatening, Hospitalization, Other)
  Sender: FDA-Public Use
  Company Number: MX-BRISTOL-MYERS SQUIBB COMPANY-16346512

PATIENT
  Age: 73 Year
  Sex: Male
  Weight: 96 kg

DRUGS (8)
  1. LANTUS [Suspect]
     Indication: TYPE 2 DIABETES MELLITUS
     Dosage: 100 IU/ML INJECTABLE
     Route: 058
     Dates: start: 20060101
  2. CARVEDILOL [Concomitant]
     Indication: HYPERTENSION
     Route: 048
     Dates: start: 20111101
  3. CRESTOR [Concomitant]
     Indication: DYSLIPIDAEMIA
     Route: 048
     Dates: start: 20111101
  4. CLOPIDOGREL + ACETYLSALICYLIC ACID [Suspect]
     Indication: THROMBOSIS PROPHYLAXIS
     Route: 048
     Dates: start: 20110101
  5. IRBESARTAN [Suspect]
     Indication: HYPERTENSION
     Route: 048
     Dates: start: 20060101
  6. LIPITOR [Concomitant]
     Indication: DYSLIPIDAEMIA
     Route: 048
     Dates: start: 20060101, end: 20111101
  7. ASPIRIN [Concomitant]
     Route: 048
     Dates: start: 20110902
  8. LASIX [Concomitant]
     Indication: RENAL FAILURE CHRONIC
     Dosage: TABS
     Route: 048
     Dates: start: 20060101

REACTIONS (5)
  - CARDIAC DISORDER [None]
  - CIRCUMORAL OEDEMA [None]
  - DIZZINESS [None]
  - ESCHERICHIA URINARY TRACT INFECTION [None]
  - MYOCARDIAL INFARCTION [None]
